FAERS Safety Report 5271022-6 (Version None)
Quarter: 2007Q1

REPORT INFORMATION
  Report Type: 
  Country: None (occurrence: None)
  Receive Date: 20061214
  Receipt Date: 20060825
  Transmission Date: 20070707
  Serious: Yes (Hospitalization, Other)
  Sender: FDA-Public Use
  Company Number: 2006057745

PATIENT
  Age: 46 Year
  Sex: Female
  Weight: 78.4723 kg

DRUGS (18)
  1. BEXTRA [Suspect]
     Indication: BACK PAIN
     Dosage: 10 MG (10 MG, 1 IN 1 D)
     Dates: start: 20040101, end: 20040101
  2. SYNTHROID [Concomitant]
  3. ZANTAC [Concomitant]
  4. SINGULAIR ^MERCK' (MONTELULAST SODIUM) [Concomitant]
  5. LOTRISONE (BETAMETHASONE DIPROPIONATE, CLOTHRIMAZOLE) [Concomitant]
  6. CLOBETASOL (CLOBETASOL) [Concomitant]
  7. ZITHROMAX [Concomitant]
  8. HYDROCODONE BITARTRATE + ACETAMINOPHEN [Concomitant]
  9. ETODOLAC [Concomitant]
  10. ISOMETHADONE (ISOMETHADONE) [Concomitant]
  11. AVELOX [Concomitant]
  12. METHYLPREDNISOLONE [Concomitant]
  13. TOPROL-XL [Concomitant]
  14. LISINOPRIL [Concomitant]
  15. ZOCOR [Concomitant]
  16. SPIRONOLACTONE [Concomitant]
  17. LORAZEPAM [Concomitant]
  18. DIFLUCAN [Concomitant]

REACTIONS (1)
  - CONGESTIVE CARDIOMYOPATHY [None]
